FAERS Safety Report 6528133-4 (Version None)
Quarter: 2010Q1

REPORT INFORMATION
  Report Type: 
  Country: None (occurrence: None)
  Receive Date: 20100106
  Receipt Date: 20091224
  Transmission Date: 20100710
  Serious: Yes (Other)
  Sender: FDA-Public Use
  Company Number: NL-BAYER-200941788GPV

PATIENT
  Age: 40 Year
  Sex: Female
  Weight: 60 kg

DRUGS (2)
  1. MIRENA [Suspect]
     Indication: DRUG USE FOR UNKNOWN INDICATION
     Route: 015
  2. MIRENA [Suspect]
     Route: 015
     Dates: start: 20060101, end: 20091023

REACTIONS (6)
  - ECTOPIC PREGNANCY WITH INTRAUTERINE DEVICE [None]
  - FALLOPIAN TUBE DISORDER [None]
  - GENITAL HAEMORRHAGE [None]
  - MUSCLE SPASMS [None]
  - POST PROCEDURAL HAEMORRHAGE [None]
  - UTERINE POLYP [None]
